FAERS Safety Report 4788728-5 (Version None)
Quarter: 2005Q3

REPORT INFORMATION
  Report Type: 
  Country: None (occurrence: None)
  Receive Date: 20050915
  Receipt Date: 20050526
  Transmission Date: 20060218
  Serious: No
  Sender: FDA-Public Use
  Company Number: BDI-007245

PATIENT
  Sex: Female

DRUGS (2)
  1. MULTIHANCE [Suspect]
     Indication: HAEMANGIOMA
     Dosage: 15 ML ONCE IV
     Route: 042
     Dates: start: 20050523, end: 20050523
  2. MULTIHANCE [Suspect]
     Indication: NUCLEAR MAGNETIC RESONANCE IMAGING
     Dosage: 15 ML ONCE IV
     Route: 042
     Dates: start: 20050523, end: 20050523

REACTIONS (2)
  - EYELID OEDEMA [None]
  - THROAT IRRITATION [None]
